FAERS Safety Report 6263404-0 (Version None)
Quarter: 2009Q3

REPORT INFORMATION
  Report Type: 
  Country: None (occurrence: None)
  Receive Date: 20090710
  Receipt Date: 20081031
  Transmission Date: 20100115
  Serious: No
  Sender: FDA-Public Use
  Company Number: A0755076A

PATIENT
  Sex: Female

DRUGS (2)
  1. FLOVENT [Suspect]
     Indication: DRUG USE FOR UNKNOWN INDICATION
     Route: 055
  2. UNKNOWN [Concomitant]

REACTIONS (4)
  - DRUG INEFFECTIVE [None]
  - DRY THROAT [None]
  - DYSPHONIA [None]
  - INHALATION THERAPY [None]
